FAERS Safety Report 25094263 (Version 1)
Quarter: 2025Q1

REPORT INFORMATION
  Report Type: Spontaneous
  Country: CN (occurrence: CN)
  Receive Date: 20250319
  Receipt Date: 20250319
  Transmission Date: 20250408
  Serious: Yes (Other)
  Sender: NOVARTIS
  Company Number: CN-002147023-NVSC2025CN042922

PATIENT
  Age: 61 Year
  Sex: Female
  Weight: 41 kg

DRUGS (2)
  1. PAZOPANIB [Suspect]
     Active Substance: PAZOPANIB
     Indication: Renal cancer
     Dosage: 400 MG, QD
     Route: 048
     Dates: start: 20250101, end: 20250312
  2. PAZOPANIB [Suspect]
     Active Substance: PAZOPANIB
     Indication: Targeted cancer therapy

REACTIONS (2)
  - White blood cell count decreased [Recovering/Resolving]
  - Myelosuppression [Unknown]

NARRATIVE: CASE EVENT DATE: 20250311
